FAERS Safety Report 13784103 (Version 1)
Quarter: 2017Q3

REPORT INFORMATION
  Report Type: Spontaneous
  Country: NL (occurrence: NL)
  Receive Date: 20170724
  Receipt Date: 20170724
  Transmission Date: 20171127
  Serious: Yes (Other)
  Sender: FDA-Public Use
  Company Number: NL-PFIZER INC-2017306767

PATIENT
  Age: 51 Year
  Sex: Female

DRUGS (1)
  1. GENOTROPIN [Suspect]
     Active Substance: SOMATROPIN
     Dosage: 0.7 MG AND 0.8 MG, ALTERNATE DAY
     Route: 058
     Dates: start: 20130104

REACTIONS (5)
  - Depressed level of consciousness [Unknown]
  - Feeling abnormal [Unknown]
  - Drug dose omission [Unknown]
  - Discomfort [Unknown]
  - Fatigue [Unknown]
